FAERS Safety Report 8188675-5 (Version None)
Quarter: 2012Q1

REPORT INFORMATION
  Report Type: 
  Country: None (occurrence: None)
  Receive Date: 20120306
  Receipt Date: 20120223
  Transmission Date: 20120608
  Serious: Yes (Hospitalization, Other)
  Sender: FDA-Public Use
  Company Number: US-ELI_LILLY_AND_COMPANY-US201202007450

PATIENT
  Sex: Female

DRUGS (12)
  1. LEVOTHYROXINE SODIUM [Concomitant]
     Dosage: 50 UG, QD
  2. CARVEDILOL [Concomitant]
     Dosage: 3.125 MG, BID
  3. ISOSORBIDE DINITRATE [Concomitant]
     Dosage: 30 MG, QD
  4. FOLIC ACID [Concomitant]
     Dosage: 1 MG, QD
  5. FUROSEMIDE [Concomitant]
     Dosage: 20 MG, QD
  6. FORTEO [Suspect]
     Indication: OSTEOPOROSIS
     Dosage: 20 UG, QD
     Route: 065
     Dates: start: 20110101
  7. PRAVASTATIN [Concomitant]
     Dosage: 80 MG, QD
  8. MIRTAZAPINE [Concomitant]
     Dosage: 15 MG, QD
  9. ASPIRIN [Concomitant]
     Dosage: 81 MG, QD
  10. FORTEO [Suspect]
     Dosage: 20 UG, QD
     Dates: end: 20111231
  11. LISINOPRIL [Concomitant]
     Dosage: 2.5 MG, QD
  12. OMEPRAZOLE [Concomitant]
     Dosage: 40 MG, QD

REACTIONS (3)
  - ATRIAL FIBRILLATION [None]
  - BLOOD PRESSURE DECREASED [None]
  - CARDIAC FAILURE CONGESTIVE [None]
